FAERS Safety Report 10850934 (Version 1)
Quarter: 2015Q1

REPORT INFORMATION
  Report Type: Spontaneous
  Country: US (occurrence: US)
  Receive Date: 20150222
  Receipt Date: 20150222
  Transmission Date: 20150721
  Serious: No
  Sender: FDA-Public Use
  Company Number: US-ALLERGAN-1405037US

PATIENT
  Sex: Female

DRUGS (5)
  1. BOTOX [Suspect]
     Active Substance: ONABOTULINUMTOXINA
     Indication: MIGRAINE
  2. IMITREX [Concomitant]
     Active Substance: SUMATRIPTAN\SUMATRIPTAN SUCCINATE
     Indication: MIGRAINE
     Dosage: UNK UNK, PRN
     Route: 048
  3. SUMAZEL DOSE PRO INJECTIONS [Concomitant]
     Indication: MIGRAINE
     Dosage: UNK
  4. IMITREX SPRAY [Concomitant]
     Active Substance: SUMATRIPTAN
     Indication: MIGRAINE
     Dosage: UNK, PRN
     Route: 045
  5. NORTRIPTYLINE [Concomitant]
     Active Substance: NORTRIPTYLINE
     Indication: MIGRAINE
     Dosage: 30 MG, QD
     Route: 048

REACTIONS (4)
  - Migraine [Recovered/Resolved]
  - Dermatitis acneiform [Unknown]
  - Injection site rash [Unknown]
  - Neck pain [Unknown]

NARRATIVE: CASE EVENT DATE: 201403
